FAERS Safety Report 21649107 (Version 2)
Quarter: 2022Q4

REPORT INFORMATION
  Report Type: Report from Study
  Country: US (occurrence: US)
  Receive Date: 20221128
  Receipt Date: 20221229
  Transmission Date: 20230113
  Serious: No
  Sender: FDA-Public Use
  Company Number: US-ABBVIE-4212083

PATIENT
  Sex: Female
  Weight: 86.182 kg

DRUGS (2)
  1. HUMIRA [Suspect]
     Active Substance: ADALIMUMAB
     Indication: Uveitis
     Dosage: START DATE TEXT: MAY OR JUNE 2020
     Route: 058
     Dates: start: 2020
  2. HUMIRA [Suspect]
     Active Substance: ADALIMUMAB
     Indication: Ankylosing spondylitis

REACTIONS (4)
  - Arthralgia [Recovering/Resolving]
  - Therapeutic response shortened [Not Recovered/Not Resolved]
  - Joint stiffness [Not Recovered/Not Resolved]
  - Musculoskeletal stiffness [Recovering/Resolving]

NARRATIVE: CASE EVENT DATE: 20220101
